FAERS Safety Report 8463951-7 (Version None)
Quarter: 2012Q2

REPORT INFORMATION
  Report Type: 
  Country: None (occurrence: None)
  Receive Date: 20120625
  Receipt Date: 20120618
  Transmission Date: 20120825
  Serious: Yes (Hospitalization)
  Sender: FDA-Public Use
  Company Number: US-JNJFOC-20110611498

PATIENT
  Sex: Female
  Weight: 57.15 kg

DRUGS (10)
  1. PAROXETINE [Concomitant]
  2. FOLIC ACID [Concomitant]
     Route: 065
  3. OXYCODONE HCL [Concomitant]
     Route: 065
  4. M.V.I. [Concomitant]
     Route: 065
  5. VITAMIN B-12 [Concomitant]
     Route: 065
  6. CIPROFLOXACIN HCL [Concomitant]
  7. VITAMIN B COMPLEX CAP [Concomitant]
  8. GABAPENTIN [Concomitant]
  9. REMICADE [Suspect]
     Indication: PRODUCT USED FOR UNKNOWN INDICATION
     Route: 042
  10. LEVOTHYROXINE [Concomitant]

REACTIONS (2)
  - VOMITING [None]
  - SYNCOPE [None]
